FAERS Safety Report 9191418 (Version 1)
Quarter: 2013Q1

REPORT INFORMATION
  Report Type: Spontaneous
  Country: US (occurrence: US)
  Receive Date: 20130326
  Receipt Date: 20130326
  Transmission Date: 20140127
  Serious: Yes (Other)
  Sender: FDA-Public Use
  Company Number: CHPA2013US004789

PATIENT
  Age: 38 Year
  Sex: Female

DRUGS (4)
  1. GAS-X [Suspect]
     Indication: ABDOMINAL DISTENSION
     Dosage: UNK, QD PRN
     Route: 048
  2. GAS-X [Suspect]
     Indication: FLATULENCE
     Dosage: UNK, MORE THAN ONCE A DAY
     Route: 048
  3. HYOSCYAMINE SULFATE [Concomitant]
     Indication: ABDOMINAL PAIN UPPER
     Dosage: UNK, Q4H
     Route: 060
  4. PROTONIX [Concomitant]

REACTIONS (6)
  - Cholelithiasis [Unknown]
  - Benign neoplasm [Unknown]
  - Adhesion [Unknown]
  - Flatulence [Not Recovered/Not Resolved]
  - Abdominal distension [Not Recovered/Not Resolved]
  - Condition aggravated [Unknown]
